FAERS Safety Report 4341841-9 (Version None)
Quarter: 2004Q2

REPORT INFORMATION
  Report Type: 
  Country: None (occurrence: None)
  Receive Date: 20040415
  Receipt Date: 20040401
  Transmission Date: 20050107
  Serious: Yes (Life-Threatening)
  Sender: FDA-Public Use
  Company Number: 2004-114457-NL

PATIENT
  Age: 61 Year
  Sex: Male

DRUGS (2)
  1. DANAPAROID SODIUM [Suspect]
     Dosage: 6000 ANTI_XA INTRAVENOUS (NOS)
     Route: 042
     Dates: start: 20040226, end: 20040303
  2. HEPARIN [Suspect]
     Indication: PULMONARY EMBOLISM
     Dosage: 24000 IU INTRAVENOUS (NOS)
     Route: 042
     Dates: start: 20040216, end: 20040223

REACTIONS (1)
  - HEPARIN-INDUCED THROMBOCYTOPENIA [None]
